FAERS Safety Report 8322822-7 (Version None)
Quarter: 2012Q2

REPORT INFORMATION
  Report Type: 
  Country: None (occurrence: None)
  Receive Date: 20120430
  Receipt Date: 20120419
  Transmission Date: 20120825
  Serious: Yes (Hospitalization)
  Sender: FDA-Public Use
  Company Number: JP-ROCHE-1059054

PATIENT
  Sex: Female
  Weight: 60 kg

DRUGS (8)
  1. COMELIAN [Concomitant]
     Route: 048
  2. FUROSEMIDE [Concomitant]
     Indication: HYPERTENSION
     Route: 048
  3. COPEGUS [Suspect]
     Indication: HEPATITIS C
     Route: 048
     Dates: start: 20110419, end: 20111003
  4. MAIBASTAN [Concomitant]
     Indication: HYPERLIPIDAEMIA
     Route: 048
  5. OLMESARTAN MEDOXOMIL [Concomitant]
     Indication: HYPERTENSION
     Route: 048
  6. TOYOFAROL [Concomitant]
     Indication: OSTEOPOROSIS
     Route: 048
  7. PEGASYS [Suspect]
     Indication: HEPATITIS C
     Dosage: DOSAGE IS UNCERTAIN
     Route: 058
     Dates: start: 20110419, end: 20110926
  8. REZALTAS [Concomitant]
     Indication: HYPERTENSION
     Route: 048

REACTIONS (1)
  - NEPHROTIC SYNDROME [None]
